FAERS Safety Report 5380815-6 (Version None)
Quarter: 2007Q3

REPORT INFORMATION
  Report Type: 
  Country: None (occurrence: None)
  Receive Date: 20070706
  Receipt Date: 20070507
  Transmission Date: 20080115
  Serious: Yes (Other)
  Sender: FDA-Public Use
  Company Number: US-PURDUE-2014127

PATIENT
  Sex: Male

DRUGS (1)
  1. OXYCONTIN TABLETS 10 MG [Suspect]
     Indication: BACK PAIN
     Dosage: UNK MG, UNK
     Dates: start: 20000406, end: 20050101

REACTIONS (4)
  - DEPRESSION [None]
  - DRUG DEPENDENCE [None]
  - DRUG WITHDRAWAL SYNDROME [None]
  - SUICIDAL IDEATION [None]
